FAERS Safety Report 10328946 (Version 1)
Quarter: 2014Q3

REPORT INFORMATION
  Report Type: Spontaneous
  Country: TR (occurrence: TR)
  Receive Date: 20140721
  Receipt Date: 20140721
  Transmission Date: 20150326
  Serious: Yes (Life-Threatening, Hospitalization, Other)
  Sender: FDA-Public Use
  Company Number: TR-BAYER-2014-105228

PATIENT
  Age: 54 Year
  Sex: Male

DRUGS (1)
  1. REGORAFENIB [Suspect]
     Active Substance: REGORAFENIB
     Indication: GASTROINTESTINAL STROMAL TUMOUR
     Dosage: 160 MG SINGLE DOSE
     Route: 048

REACTIONS (3)
  - Hypertensive crisis [Recovered/Resolved]
  - Convulsion [None]
  - Encephalopathy [None]
